FAERS Safety Report 7814778-8 (Version None)
Quarter: 2011Q4

REPORT INFORMATION
  Report Type: 
  Country: None (occurrence: None)
  Receive Date: 20111012
  Receipt Date: 20110928
  Transmission Date: 20120403
  Serious: Yes (Other)
  Sender: FDA-Public Use
  Company Number: JP-2011-11605

PATIENT
  Age: 51 Year
  Sex: Male

DRUGS (8)
  1. FLUITRAN (TRICHLOMETHIAZIDE) [Concomitant]
  2. LASIX [Concomitant]
  3. SAMSCA [Suspect]
     Indication: CONGESTIVE CARDIOMYOPATHY
     Dosage: 7.5 MG MILLIGRAM(S), QD, ORAL
     Route: 048
     Dates: start: 20110922
  4. HAMP (CARPERITIDE) [Suspect]
     Dosage: 0.0125 MCG/KG/MIN, IV DRIP
     Route: 041
     Dates: end: 20110922
  5. WARFARIN (WARFARIN POTASSIUM) [Concomitant]
  6. PRIMOBENDAN (PIMOBENDAN) [Concomitant]
  7. ARTIST (CARVEDILOL) [Concomitant]
  8. BEPRICOR (BEPRIDIL HYDROCHLIRDE HYDRATE) [Concomitant]

REACTIONS (2)
  - HYPOKALAEMIA [None]
  - VENTRICULAR TACHYCARDIA [None]
